FAERS Safety Report 8854842 (Version 1)
Quarter: 2012Q4

REPORT INFORMATION
  Report Type: 
  Country: FR (occurrence: FR)
  Receive Date: 20121023
  Receipt Date: 20121023
  Transmission Date: 20130627
  Serious: Yes (Hospitalization)
  Sender: FDA-Public Use
  Company Number: PHHY2012FR093981

PATIENT
  Age: 73 Year
  Sex: Female

DRUGS (10)
  1. TAREG [Suspect]
     Dosage: 160 mg, QD
     Route: 048
     Dates: start: 20120516, end: 20120602
  2. LASILIX [Suspect]
     Dosage: 20 mg, daily
     Route: 048
     Dates: start: 20120427, end: 201206
  3. TAHOR [Concomitant]
     Dosage: 80 mg, QD
     Route: 048
     Dates: start: 20120427
  4. PLAVIX [Concomitant]
     Dosage: 75 mg, QD
     Route: 048
     Dates: start: 20120427, end: 20120616
  5. KARDEGIC [Concomitant]
     Dosage: 75 mg, QD
     Route: 048
     Dates: start: 20120427
  6. BISOPROLOL [Concomitant]
     Dosage: 5 mg, QD
     Route: 048
     Dates: start: 20120427
  7. CORDARONE [Concomitant]
     Dosage: 200 mg, QD
     Route: 048
     Dates: start: 20120501
  8. COUMADINE [Concomitant]
     Dosage: 2 mg, QD
     Route: 048
     Dates: start: 20120520
  9. PREVISCAN [Concomitant]
     Dates: end: 20120520
  10. LEVOTHYROX [Concomitant]
     Indication: HYPERTHYROIDISM

REACTIONS (3)
  - Agranulocytosis [Recovering/Resolving]
  - Neutropenia [Recovering/Resolving]
  - Odynophagia [Unknown]
